FAERS Safety Report 6699222-9 (Version None)
Quarter: 2010Q2

REPORT INFORMATION
  Report Type: 
  Country: None (occurrence: None)
  Receive Date: 20100427
  Receipt Date: 20100426
  Transmission Date: 20101027
  Serious: Yes (Life-Threatening)
  Sender: FDA-Public Use
  Company Number: DE-GILEAD-2010-0027565

PATIENT
  Age: 75 Year
  Sex: Female
  Weight: 70 kg

DRUGS (2)
  1. VIREAD [Suspect]
     Indication: HEPATITIS B
     Route: 048
     Dates: start: 20091126, end: 20100308
  2. ACTRAPHANE PENFIL [Concomitant]
     Indication: DIABETES MELLITUS

REACTIONS (1)
  - RENAL FAILURE [None]
